FAERS Safety Report 8444437-2 (Version None)
Quarter: 2012Q2

REPORT INFORMATION
  Report Type: 
  Country: None (occurrence: None)
  Receive Date: 20120612
  Receipt Date: 20120612
  Transmission Date: 20120825
  Serious: No
  Sender: FDA-Public Use
  Company Number: None

PATIENT

DRUGS (3)
  1. ACETAMINOPHEN [Suspect]
  2. VICODIN [Suspect]
  3. AMLODIPINE [Suspect]

REACTIONS (2)
  - MEDICATION ERROR [None]
  - INTERCEPTED DRUG PRESCRIBING ERROR [None]
